FAERS Safety Report 8377631-X (Version None)
Quarter: 2012Q2

REPORT INFORMATION
  Report Type: 
  Country: None (occurrence: None)
  Receive Date: 20120522
  Receipt Date: 20120517
  Transmission Date: 20120825
  Serious: Yes (Hospitalization, Other)
  Sender: FDA-Public Use
  Company Number: US-BAYER-2012-040940

PATIENT
  Age: 19 Year
  Sex: Female
  Weight: 61.678 kg

DRUGS (14)
  1. YASMIN [Suspect]
     Indication: CONTRACEPTION
     Dosage: UNK
     Dates: start: 20080624
  2. ROXICET [Concomitant]
     Indication: PAIN
     Dosage: UNK, UNK
     Route: 048
  3. ROXICET [Concomitant]
     Dosage: 325 MG, Q4HR
     Route: 048
  4. YASMIN [Suspect]
     Indication: MENSTRUAL CYCLE MANAGEMENT
  5. ABILIFY [Concomitant]
     Dosage: 10 MG, UNK
     Dates: start: 20110506
  6. DROSPIRENONE AND ETHINYL ESTRADIOL [Suspect]
     Indication: CONTRACEPTION
     Dosage: UNK
     Dates: start: 20080722, end: 20111218
  7. NEXIUM [Concomitant]
     Indication: ABDOMINAL PAIN UPPER
     Dosage: UNK
     Dates: start: 20110527
  8. VICODIN [Concomitant]
     Dosage: 500 MG, QID
     Route: 048
  9. PANTOPRAZOLE [Concomitant]
     Dosage: 25 MG, UNK
     Dates: start: 20110516
  10. PANTOPRAZOLE [Concomitant]
     Dosage: 40 MG, UNK
     Dates: start: 20110528
  11. PROTONIX [Concomitant]
     Dosage: 40 MG, QD
  12. PANTOPRAZOLE [Concomitant]
     Dosage: 25 MG, UNK
     Dates: end: 20110626
  13. VICODIN [Concomitant]
     Indication: PAIN
     Dosage: 5 MG, QID
     Route: 048
  14. PRILOSEC [Concomitant]
     Dosage: UNK
     Dates: start: 20101008

REACTIONS (5)
  - CHOLECYSTECTOMY [None]
  - ABDOMINAL PAIN UPPER [None]
  - CHOLECYSTITIS ACUTE [None]
  - GASTRIC DISORDER [None]
  - GALLBLADDER PAIN [None]
